FAERS Safety Report 5027438-6 (Version None)
Quarter: 2006Q2

REPORT INFORMATION
  Report Type: 
  Country: None (occurrence: None)
  Receive Date: 20060501
  Receipt Date: 20060123
  Transmission Date: 20061013
  Serious: No
  Sender: FDA-Public Use
  Company Number: 200610456BWH

PATIENT
  Age: 66 Year
  Sex: Female

DRUGS (3)
  1. NEXAVAR [Suspect]
     Indication: RENAL CELL CARCINOMA STAGE UNSPECIFIED
     Dosage: SEE IMAGE
     Route: 048
     Dates: start: 20060101
  2. NEXAVAR [Suspect]
     Indication: RENAL CELL CARCINOMA STAGE UNSPECIFIED
     Dosage: SEE IMAGE
     Route: 048
     Dates: start: 20060108
  3. NEXAVAR [Suspect]
     Indication: RENAL CELL CARCINOMA STAGE UNSPECIFIED
     Dosage: SEE IMAGE
     Route: 048
     Dates: start: 20060110

REACTIONS (10)
  - ANOREXIA [None]
  - COUGH [None]
  - DIARRHOEA [None]
  - DYSPHONIA [None]
  - ERYTHEMA [None]
  - FATIGUE [None]
  - NAUSEA [None]
  - ORAL DISCOMFORT [None]
  - PAIN IN EXTREMITY [None]
  - WEIGHT DECREASED [None]
